FAERS Safety Report 25356014 (Version 1)
Quarter: 2025Q2

REPORT INFORMATION
  Report Type: Spontaneous
  Country: PT (occurrence: PT)
  Receive Date: 20250525
  Receipt Date: 20250525
  Transmission Date: 20250717
  Serious: Yes (Hospitalization, Other)
  Sender: MERCK SHARP & DOHME LLC
  Company Number: PT-009507513-2287857

PATIENT
  Age: 68 Year
  Sex: Male

DRUGS (3)
  1. PEMBROLIZUMAB [Suspect]
     Active Substance: PEMBROLIZUMAB
     Indication: Oropharyngeal cancer
     Dates: start: 2023
  2. CISPLATIN [Suspect]
     Active Substance: CISPLATIN
     Indication: Oropharyngeal cancer
     Dates: start: 2023
  3. FLUOROURACIL [Suspect]
     Active Substance: FLUOROURACIL
     Indication: Oropharyngeal cancer
     Dates: start: 2023

REACTIONS (9)
  - Hypophysitis [Unknown]
  - Urosepsis [Unknown]
  - Acute kidney injury [Unknown]
  - Malignant neoplasm oligoprogression [Unknown]
  - Cystitis escherichia [Unknown]
  - Renal failure [Unknown]
  - Thyroiditis [Unknown]
  - Diabetic ketoacidosis [Unknown]
  - Pneumonia aspiration [Unknown]

NARRATIVE: CASE EVENT DATE: 20230101
